FAERS Safety Report 7464593-2 (Version None)
Quarter: 2011Q2

REPORT INFORMATION
  Report Type: 
  Country: None (occurrence: None)
  Receive Date: 20110509
  Receipt Date: 20100720
  Transmission Date: 20111010
  Serious: Yes (Other)
  Sender: FDA-Public Use
  Company Number: US-PFIZER INC-2010071003

PATIENT
  Sex: Female

DRUGS (8)
  1. DULCOLAX [Concomitant]
  2. ACCUPRIL [Suspect]
     Indication: HYPERTENSION
     Dosage: 20 MG, 1X/DAY
     Route: 048
  3. FLEXERIL [Concomitant]
     Dosage: UNK
  4. PRILOSEC [Concomitant]
  5. ZOLOFT [Concomitant]
     Dosage: 100 MG, 1X/DAY
  6. GLUCOTROL XL [Concomitant]
     Indication: TYPE 2 DIABETES MELLITUS
     Dosage: UNK
  7. LACTULOSE [Concomitant]
     Dosage: 10 G, UNK
  8. LORTAB [Concomitant]
     Dosage: 500 MG, 3X/DAY

REACTIONS (2)
  - MEDICATION RESIDUE [None]
  - ANAEMIA [None]
